FAERS Safety Report 12310603 (Version 2)
Quarter: 2016Q2

REPORT INFORMATION
  Report Type: Spontaneous
  Country: US (occurrence: US)
  Receive Date: 20160427
  Receipt Date: 20160506
  Transmission Date: 20160815
  Serious: Yes (Other)
  Sender: FDA-Public Use
  Company Number: US-BEH-2016061632

PATIENT
  Age: 65 Year
  Sex: Female
  Weight: 107 kg

DRUGS (22)
  1. PREDNISONE. [Concomitant]
     Active Substance: PREDNISONE
  2. DAILY MULTIVITAMIN [Concomitant]
     Active Substance: VITAMINS
  3. ALBUTEROL. [Concomitant]
     Active Substance: ALBUTEROL
  4. PENICILLIN [Concomitant]
     Active Substance: PENICILLIN
  5. SYMBICORT [Concomitant]
     Active Substance: BUDESONIDE\FORMOTEROL FUMARATE DIHYDRATE
  6. NOVOLOG [Concomitant]
     Active Substance: INSULIN ASPART
  7. ZEMAIRA [Suspect]
     Active Substance: .ALPHA.1-PROTEINASE INHIBITOR HUMAN
     Indication: ALPHA-1 ANTI-TRYPSIN DEFICIENCY
     Route: 042
     Dates: start: 20080401
  8. FISH OIL [Concomitant]
     Active Substance: FISH OIL
  9. CHANTIX [Concomitant]
     Active Substance: VARENICLINE TARTRATE
  10. LMX [Concomitant]
     Active Substance: LIDOCAINE
  11. PLETAL [Concomitant]
     Active Substance: CILOSTAZOL
  12. ASPIRIN. [Concomitant]
     Active Substance: ASPIRIN
  13. SPIRIVA [Concomitant]
     Active Substance: TIOTROPIUM BROMIDE MONOHYDRATE
  14. NORCO [Concomitant]
     Active Substance: ACETAMINOPHEN\HYDROCODONE BITARTRATE
  15. SODIUM CHLORIDE. [Concomitant]
     Active Substance: SODIUM CHLORIDE
  16. LISINOPRIL. [Concomitant]
     Active Substance: LISINOPRIL
  17. PLAVIX [Concomitant]
     Active Substance: CLOPIDOGREL BISULFATE
  18. CHERATUSSIN AC [Concomitant]
     Active Substance: CODEINE PHOSPHATE\GUAIFENESIN
  19. DIPHENHYDRAMINE. [Concomitant]
     Active Substance: DIPHENHYDRAMINE
  20. LANTUS [Concomitant]
     Active Substance: INSULIN GLARGINE
  21. EPIPEN [Concomitant]
     Active Substance: EPINEPHRINE
  22. VITAMIN E [Concomitant]
     Active Substance: .ALPHA.-TOCOPHEROL

REACTIONS (1)
  - Tooth abscess [Unknown]

NARRATIVE: CASE EVENT DATE: 20160419
